FAERS Safety Report 19650967 (Version 2)
Quarter: 2021Q4

REPORT INFORMATION
  Report Type: Spontaneous
  Country: US (occurrence: US)
  Receive Date: 20210802
  Receipt Date: 20211105
  Transmission Date: 20220303
  Serious: Yes (Other)
  Sender: FDA-Public Use
  Company Number: US-BRISTOL-MYERS SQUIBB COMPANY-BMS-2021-075521

PATIENT
  Age: 59 Year
  Sex: Female
  Weight: 84.3 kg

DRUGS (2)
  1. IPILIMUMAB [Suspect]
     Active Substance: IPILIMUMAB
     Indication: Metastases to meninges
     Dosage: UNK
     Route: 065
     Dates: start: 20201214, end: 20210125
  2. NIVOLUMAB [Suspect]
     Active Substance: NIVOLUMAB
     Indication: Metastases to meninges
     Dosage: UNK
     Route: 065
     Dates: start: 20201214, end: 20210125

REACTIONS (1)
  - Colitis [Unknown]
